FAERS Safety Report 26056102 (Version 1)
Quarter: 2025Q4

REPORT INFORMATION
  Report Type: Spontaneous
  Country: US (occurrence: US)
  Receive Date: 20251118
  Receipt Date: 20251118
  Transmission Date: 20260118
  Serious: Yes (Hospitalization)
  Sender: SPECGX
  Company Number: US-SPECGX-T202501864

PATIENT
  Age: 37 Year
  Sex: Female

DRUGS (1)
  1. METHYLPHENIDATE HYDROCHLORIDE [Suspect]
     Active Substance: METHYLPHENIDATE HYDROCHLORIDE
     Indication: Attention deficit hyperactivity disorder
     Dosage: UNK
     Route: 042

REACTIONS (9)
  - Acute respiratory failure [Recovered/Resolved]
  - Deep vein thrombosis [Recovered/Resolved]
  - Bacteraemia [Recovered/Resolved]
  - Right ventricular failure [Recovered/Resolved]
  - Pulmonary hypertension [Recovered/Resolved]
  - Syncope [Recovered/Resolved]
  - Drug abuse [Unknown]
  - Wrong technique in product usage process [Unknown]
  - Incorrect route of product administration [Unknown]
